FAERS Safety Report 20219817 (Version 1)
Quarter: 2021Q4

REPORT INFORMATION
  Report Type: Spontaneous
  Country: US (occurrence: US)
  Receive Date: 20211222
  Receipt Date: 20211222
  Transmission Date: 20220304
  Serious: No
  Sender: FDA-Public Use
  Company Number: US-UPSHER-SMITH LABORATORIES, LLC-2021USL00804

PATIENT
  Sex: Female

DRUGS (3)
  1. KLOR-CON M [Suspect]
     Active Substance: POTASSIUM CHLORIDE
     Indication: Blood potassium decreased
     Route: 048
  2. UNSPECIFIED CHEMOTHERAPY AGENTS [Concomitant]
  3. UNSPECIFIED ^A LOT OF MEDICATION^ [Concomitant]

REACTIONS (3)
  - Vomiting [Recovered/Resolved]
  - Wrong technique in product usage process [Unknown]
  - Product use complaint [Unknown]
